FAERS Safety Report 9663787 (Version 2)
Quarter: 2013Q4

REPORT INFORMATION
  Report Type: Report from Study
  Country: US (occurrence: US)
  Receive Date: 20131101
  Receipt Date: 20131126
  Transmission Date: 20140711
  Serious: Yes (Hospitalization)
  Sender: FDA-Public Use
  Company Number: US-SA-2013SA111248

PATIENT
  Sex: 0

DRUGS (1)
  1. ZALTRAP [Suspect]

REACTIONS (3)
  - Cerebral vasoconstriction [Unknown]
  - Subarachnoid haemorrhage [Unknown]
  - Hypertension [Unknown]
